FAERS Safety Report 6502952-2 (Version None)
Quarter: 2009Q4

REPORT INFORMATION
  Report Type: 
  Country: None (occurrence: None)
  Receive Date: 20091217
  Receipt Date: 20091208
  Transmission Date: 20100525
  Serious: Yes (Death, Hospitalization, Other)
  Sender: FDA-Public Use
  Company Number: US-BAXTER-2009BH019041

PATIENT
  Sex: Female

DRUGS (4)
  1. HEPARIN SODIUM INJECTION [Suspect]
     Indication: PROPHYLAXIS
     Route: 058
     Dates: start: 20070901
  2. HEPARIN SODIUM INJECTION [Suspect]
     Indication: DIALYSIS
     Route: 058
     Dates: start: 20070901
  3. HEPARIN SODIUM INJECTION [Suspect]
     Route: 065
     Dates: start: 20070901
  4. HEPARIN SODIUM INJECTION [Suspect]
     Route: 065
     Dates: start: 20070901

REACTIONS (8)
  - CONDITION AGGRAVATED [None]
  - DEATH [None]
  - HYPOTENSION [None]
  - PLATELET COUNT DECREASED [None]
  - RASH [None]
  - SEPSIS [None]
  - SKIN EXFOLIATION [None]
  - TACHYCARDIA [None]
